FAERS Safety Report 24690055 (Version 1)
Quarter: 2024Q4

REPORT INFORMATION
  Report Type: Spontaneous
  Country: US (occurrence: None)
  Receive Date: 20241202
  Receipt Date: 20241202
  Transmission Date: 20250115
  Serious: Yes (Hospitalization, Other)
  Sender: Public
  Company Number: None

PATIENT
  Age: 75 Year
  Sex: Female

DRUGS (1)
  1. LOSARTAN [Suspect]
     Active Substance: LOSARTAN
     Dosage: FREQUENCY : TWICE A DAY;?

REACTIONS (4)
  - Fall [None]
  - Sepsis [None]
  - Therapy change [None]
  - Blood pressure decreased [None]
